FAERS Safety Report 11149301 (Version 2)
Quarter: 2015Q3

REPORT INFORMATION
  Report Type: Spontaneous
  Country: IL (occurrence: IL)
  Receive Date: 20150529
  Receipt Date: 20150701
  Transmission Date: 20151125
  Serious: Yes (Death)
  Sender: FDA-Public Use
  Company Number: IL-CELGENE-ISR-2015055083

PATIENT
  Sex: Male

DRUGS (9)
  1. GRANISETRON [Concomitant]
     Active Substance: GRANISETRON
     Indication: NAUSEA
     Route: 048
     Dates: start: 20150128
  2. DEXAMETHASONE. [Concomitant]
     Active Substance: DEXAMETHASONE
     Indication: NAUSEA
     Route: 048
     Dates: start: 20150212
  3. SATIVEX [Suspect]
     Active Substance: NABIXIMOLS
     Indication: CANCER PAIN
     Route: 002
     Dates: start: 20140709, end: 2015
  4. GEMCITABINE [Concomitant]
     Active Substance: GEMCITABINE\GEMCITABINE HYDROCHLORIDE
     Indication: PANCREATIC CARCINOMA METASTATIC
     Route: 041
     Dates: start: 20150212, end: 20150226
  5. OXYCODONE [Concomitant]
     Active Substance: OXYCODONE
     Dosage: 1 MILLIGRAM
     Route: 048
     Dates: start: 201405
  6. OXYCODONE [Concomitant]
     Active Substance: OXYCODONE
     Indication: BREAKTHROUGH PAIN
     Route: 048
     Dates: start: 201405
  7. ABRAXANE [Suspect]
     Active Substance: PACLITAXEL
     Indication: PANCREATIC CARCINOMA METASTATIC
     Route: 041
     Dates: start: 20150115, end: 20150226
  8. DEXAMETHASONE. [Concomitant]
     Active Substance: DEXAMETHASONE
     Indication: ASTHENIA
  9. OXYCODONE [Concomitant]
     Active Substance: OXYCODONE
     Dosage: 5 OTHER
     Route: 048
     Dates: start: 201405

REACTIONS (3)
  - Cardiac failure [Fatal]
  - Haemoglobin decreased [Fatal]
  - Haemorrhage [Fatal]

NARRATIVE: CASE EVENT DATE: 2015
